FAERS Safety Report 6111286-X (Version None)
Quarter: 2009Q1

REPORT INFORMATION
  Report Type: 
  Country: None (occurrence: None)
  Receive Date: 20090310
  Receipt Date: 20090310
  Transmission Date: 20090719
  Serious: Yes (Life-Threatening, Other)
  Sender: FDA-Public Use
  Company Number: None

PATIENT
  Age: 28 Year
  Sex: Female
  Weight: 58.9676 kg

DRUGS (2)
  1. YAZ [Suspect]
     Indication: ACNE
     Dosage: 1 PILL DAILY PO WEEK
     Route: 048
     Dates: start: 20090227, end: 20090306
  2. YAZ [Suspect]
     Indication: PREMENSTRUAL SYNDROME
     Dosage: 1 PILL DAILY PO WEEK
     Route: 048
     Dates: start: 20090227, end: 20090306

REACTIONS (8)
  - ABDOMINAL DISCOMFORT [None]
  - BREAST MASS [None]
  - BREAST PAIN [None]
  - CHILLS [None]
  - FATIGUE [None]
  - HEADACHE [None]
  - PAIN IN EXTREMITY [None]
  - THROMBOSIS [None]
